FAERS Safety Report 13356487 (Version 1)
Quarter: 2017Q1

REPORT INFORMATION
  Report Type: Spontaneous
  Country: US (occurrence: US)
  Receive Date: 20170321
  Receipt Date: 20170321
  Transmission Date: 20170429
  Serious: No
  Sender: FDA-Public Use
  Company Number: US-PFIZER INC-2017119984

PATIENT
  Sex: Female

DRUGS (3)
  1. LYRICA [Suspect]
     Active Substance: PREGABALIN
     Indication: ARTHRALGIA
     Dosage: 150 MG, UNK
     Dates: start: 2014
  2. HYDROCODONE [Concomitant]
     Active Substance: HYDROCODONE
     Indication: ARTHRALGIA
  3. CYCLOBENZAPRINE [Concomitant]
     Active Substance: CYCLOBENZAPRINE
     Indication: MUSCLE RELAXANT THERAPY

REACTIONS (4)
  - Weight increased [Unknown]
  - Irritability [Not Recovered/Not Resolved]
  - Anger [Unknown]
  - Product use issue [Unknown]

NARRATIVE: CASE EVENT DATE: 2014
